FAERS Safety Report 7599741-7 (Version None)
Quarter: 2011Q2

REPORT INFORMATION
  Report Type: 
  Country: None (occurrence: None)
  Receive Date: 20110629
  Receipt Date: 20110621
  Transmission Date: 20111010
  Serious: Yes (Life-Threatening, Hospitalization)
  Sender: FDA-Public Use
  Company Number: TCI2011A03529

PATIENT
  Age: 62 Year
  Sex: Male

DRUGS (4)
  1. BASEN OD TABLETS 0.3 (VOGLIBOSE) [Concomitant]
  2. ACTOS [Suspect]
     Indication: DIABETES MELLITUS
     Dosage: 15 MG (15 MG, 1 IN 1 D) PER ORAL
     Route: 048
     Dates: start: 20091023
  3. AMARYL [Concomitant]
  4. KINEX (EPALRESTAT) [Concomitant]

REACTIONS (3)
  - HYPERTENSION [None]
  - BLADDER CANCER [None]
  - HYPOAESTHESIA [None]
